FAERS Safety Report 15470058 (Version 2)
Quarter: 2018Q4

REPORT INFORMATION
  Report Type: Report from Study
  Country: US (occurrence: US)
  Receive Date: 20181005
  Receipt Date: 20181019
  Transmission Date: 20190205
  Serious: Yes (Hospitalization)
  Sender: FDA-Public Use
  Company Number: US-ACTELION-A-NJ2018-179700

PATIENT
  Age: 16 Year
  Sex: Male
  Weight: 45.35 kg

DRUGS (7)
  1. MIRALAX [Concomitant]
     Active Substance: POLYETHYLENE GLYCOL 3350
  2. OPSUMIT [Suspect]
     Active Substance: MACITENTAN
     Indication: PULMONARY HYPERTENSION
     Dosage: 10 MG, QD
     Route: 048
  3. DIURIL [Concomitant]
     Active Substance: CHLOROTHIAZIDE
  4. WARFARIN [Concomitant]
     Active Substance: WARFARIN
  5. ALBUTEROL. [Concomitant]
     Active Substance: ALBUTEROL
  6. REMODULIN [Concomitant]
     Active Substance: TREPROSTINIL
  7. LASIX [Concomitant]
     Active Substance: FUROSEMIDE

REACTIONS (1)
  - Pneumonia [Unknown]
